FAERS Safety Report 8972488 (Version 2)
Quarter: 2013Q1

REPORT INFORMATION
  Report Type: Spontaneous
  Country: JP (occurrence: None)
  Receive Date: 20121207
  Receipt Date: 20130122
  Transmission Date: 20140127
  Serious: Yes (Life-Threatening, Disabling)
  Sender: FDA-Public Use
  Company Number: ABR_00731_2012

PATIENT
  Age: 87 Year
  Sex: Female
  Weight: 44.2 kg

DRUGS (4)
  1. ERYPED [Suspect]
     Indication: RESPIRATORY TRACT INFECTION
     Route: 051
     Dates: start: 20120926, end: 20121017
  2. L-CARBOCYSTEINE [Concomitant]
  3. CLONAZEPAM [Concomitant]
  4. LANSOPRAZOLE [Concomitant]

REACTIONS (5)
  - Cardiac arrest [None]
  - Electrocardiogram QT prolonged [None]
  - Obstructive airways disorder [None]
  - Sputum increased [None]
  - Respiratory arrest [None]
